FAERS Safety Report 5395127-4 (Version None)
Quarter: 2007Q3

REPORT INFORMATION
  Report Type: 
  Country: None (occurrence: None)
  Receive Date: 20070724
  Receipt Date: 20070711
  Transmission Date: 20080115
  Serious: Yes (Other)
  Sender: FDA-Public Use
  Company Number: US-TYCO HEALTHCARE/MALLINCKRODT-T200700803

PATIENT

DRUGS (1)
  1. ACETAMINOPHEN/CODEINE TABLETS [Suspect]
     Indication: HEADACHE
     Dosage: 40 TABLETS OVER A PERIOD OF 3-4 DAYS

REACTIONS (6)
  - ACCIDENTAL OVERDOSE [None]
  - ACUTE HEPATIC FAILURE [None]
  - COAGULOPATHY [None]
  - ENCEPHALOPATHY [None]
  - HEPATIC STEATOSIS [None]
  - RENAL FAILURE [None]
